FAERS Safety Report 7969575-X (Version None)
Quarter: 2011Q4

REPORT INFORMATION
  Report Type: 
  Country: None (occurrence: None)
  Receive Date: 20111212
  Receipt Date: 20111130
  Transmission Date: 20120403
  Serious: Yes (Other)
  Sender: FDA-Public Use
  Company Number: CN-PFIZER INC-2011299108

PATIENT
  Age: 70 Year
  Sex: Male

DRUGS (2)
  1. SOLU-MEDROL [Suspect]
     Indication: DERMATITIS EXFOLIATIVE
     Dosage: 160MG
     Route: 041
     Dates: start: 20110101, end: 20110101
  2. MEDROL [Suspect]
     Indication: DERMATITIS EXFOLIATIVE
     Dosage: 3 TABLETES DAILY
     Route: 048
     Dates: start: 20110101, end: 20110101

REACTIONS (1)
  - HEPATIC LESION [None]
